FAERS Safety Report 8995381 (Version 1)
Quarter: 2013Q1

REPORT INFORMATION
  Report Type: Spontaneous
  Country: US (occurrence: US)
  Receive Date: 20130103
  Receipt Date: 20130103
  Transmission Date: 20140127
  Serious: No
  Sender: FDA-Public Use
  Company Number: US-ABBOTT-12P-163-0929232-00

PATIENT
  Sex: Male
  Weight: 68.1 kg

DRUGS (2)
  1. SYNTHROID [Suspect]
     Indication: HYPOTHYROIDISM
     Dosage: 50 MCG DAILY
  2. SYNTHROID [Suspect]
     Dosage: 75 MCG DAILY

REACTIONS (5)
  - Malaise [Recovering/Resolving]
  - Nausea [Recovering/Resolving]
  - Hyperhidrosis [Recovering/Resolving]
  - Headache [Recovering/Resolving]
  - Anxiety [Recovering/Resolving]
